FAERS Safety Report 9383022 (Version 2)
Quarter: 2013Q3

REPORT INFORMATION
  Report Type: Spontaneous
  Country: AU (occurrence: AU)
  Receive Date: 20130704
  Receipt Date: 20130718
  Transmission Date: 20140515
  Serious: Yes (Other)
  Sender: FDA-Public Use
  Company Number: AU-009507513-1306AUS012365

PATIENT
  Age: 40 Year
  Sex: Female

DRUGS (4)
  1. NASONEX [Suspect]
     Dosage: 50 MICROGRAM, QD
     Route: 045
     Dates: start: 20130402, end: 20130408
  2. ROXITHROMYCIN [Suspect]
     Dosage: 300 MG, QD
     Route: 048
     Dates: start: 20130402, end: 20130408
  3. ANAFRANIL [Concomitant]
     Dosage: 25 MG, QD
     Route: 048
  4. RISPERDAL [Concomitant]
     Dosage: 1 MG, QD
     Route: 048

REACTIONS (1)
  - Grand mal convulsion [Recovered/Resolved]
